FAERS Safety Report 4875172-5 (Version None)
Quarter: 2006Q1

REPORT INFORMATION
  Report Type: 
  Country: None (occurrence: None)
  Receive Date: 20060104
  Receipt Date: 20051221
  Transmission Date: 20060701
  Serious: Yes (Hospitalization)
  Sender: FDA-Public Use
  Company Number: 2005P1000509

PATIENT
  Age: 70 Year
  Sex: Female
  Weight: 115 kg

DRUGS (7)
  1. RETEPLASE (RETEPLASE) [Suspect]
     Indication: ACUTE MYOCARDIAL INFARCTION
     Dosage: IV
     Route: 042
     Dates: start: 20050219, end: 20050219
  2. ABCIXIMAB (ABCIXIMAB) [Suspect]
     Indication: ACUTE MYOCARDIAL INFARCTION
     Dosage: IV
     Route: 042
     Dates: start: 20050219, end: 20050219
  3. ASPIRIN [Concomitant]
  4. ACE INHIBITOR [Concomitant]
  5. CHOLESTEROL AND TRIGLYCERIDE REDUCERS [Concomitant]
  6. DIGITALIS [Concomitant]
  7. ANTIARRHYTHMICS, CLASS I AND III [Concomitant]

REACTIONS (8)
  - ANGINA UNSTABLE [None]
  - ATRIAL FIBRILLATION [None]
  - ATRIOVENTRICULAR BLOCK COMPLETE [None]
  - CARDIAC ARREST [None]
  - CARDIAC FAILURE [None]
  - CORONARY ARTERY OCCLUSION [None]
  - THERAPY NON-RESPONDER [None]
  - VENTRICULAR FIBRILLATION [None]
